FAERS Safety Report 25874462 (Version 1)
Quarter: 2025Q4

REPORT INFORMATION
  Report Type: Spontaneous
  Country: US (occurrence: None)
  Receive Date: 20251002
  Receipt Date: 20251002
  Transmission Date: 20260118
  Serious: No
  Sender: FDA-CTU
  Company Number: None

PATIENT
  Age: 27 Year
  Sex: Male
  Weight: 72 kg

DRUGS (7)
  1. FINASTERIDE [Suspect]
     Active Substance: FINASTERIDE
     Indication: Androgenetic alopecia
     Dosage: OTHER QUANTITY : 30 TABLET(S);?FREQUENCY : DAILY;?
     Route: 048
     Dates: start: 20250919, end: 20250924
  2. Tretinoin (0.05%) [Concomitant]
  3. Topical Minoxidil (5%) [Concomitant]
  4. Men^s Daily Vitamin [Concomitant]
  5. Mg 200mg [Concomitant]
  6. Omega-3 supplement [Concomitant]
  7. CREATINE MONOHYDRATE [Concomitant]
     Active Substance: CREATINE MONOHYDRATE

REACTIONS (10)
  - Anxiety [None]
  - Insomnia [None]
  - Headache [None]
  - Testicular pain [None]
  - Asthenia [None]
  - Impaired work ability [None]
  - Libido decreased [None]
  - Erectile dysfunction [None]
  - Vision blurred [None]
  - Dry eye [None]

NARRATIVE: CASE EVENT DATE: 20250920
